FAERS Safety Report 9321379 (Version 1)
Quarter: 2013Q2

REPORT INFORMATION
  Report Type: Report from Study
  Country: FR (occurrence: FR)
  Receive Date: 20130531
  Receipt Date: 20130531
  Transmission Date: 20140414
  Serious: Yes (Hospitalization)
  Sender: FDA-Public Use
  Company Number: FR-ROCHE-795369

PATIENT
  Age: 53 Year
  Sex: Male
  Weight: 71 kg

DRUGS (6)
  1. CAPECITABINE [Suspect]
     Indication: RECTAL CANCER
     Dosage: 500MG/M2: 890MG, 1000MG/M2 PO,BID D1-D15 OF 3 WEEK CYCLE, LAST DATE OF DOSE PRIOR TO SAE 25 MAY 2011
     Route: 048
  2. OXALIPLATIN [Suspect]
     Indication: RECTAL CANCER
     Dosage: 130MG/M2 IV ON D1 OF 3 WEEK CYCLE, LAST DATE OF DOSE PRIOR TO SAE: 10 MAY 2011
     Route: 042
  3. STILNOX [Concomitant]
     Indication: INSOMNIA
     Route: 048
     Dates: start: 20110202
  4. LEXOMIL [Concomitant]
     Indication: ANXIETY
     Route: 048
     Dates: start: 20110202
  5. OMEXEL [Concomitant]
     Indication: BENIGN PROSTATIC HYPERPLASIA
     Route: 048
     Dates: start: 20110202, end: 20110302
  6. OMEXEL [Concomitant]
     Indication: URINARY RETENTION

REACTIONS (5)
  - Orchitis [Recovered/Resolved]
  - Staphylococcal sepsis [Recovered/Resolved]
  - Fistula [Recovered/Resolved]
  - Urinary retention [Recovered/Resolved]
  - Anastomotic leak [Recovered/Resolved]
